FAERS Safety Report 6092896-5 (Version None)
Quarter: 2009Q1

REPORT INFORMATION
  Report Type: 
  Country: None (occurrence: None)
  Receive Date: 20090225
  Receipt Date: 20090220
  Transmission Date: 20090719
  Serious: Yes (Hospitalization)
  Sender: FDA-Public Use
  Company Number: US-GENENTECH-277450

PATIENT
  Sex: Male
  Weight: 57.823 kg

DRUGS (7)
  1. ERLOTINIB [Suspect]
     Indication: NASOPHARYNGEAL CANCER
     Dosage: 100 MG, QD
     Route: 048
     Dates: start: 20081008, end: 20090209
  2. BEVACIZUMAB [Suspect]
     Indication: NASOPHARYNGEAL CANCER
     Dosage: 10 MG/KG, UNK
     Route: 042
     Dates: start: 20081222, end: 20090204
  3. CISPLATIN [Concomitant]
     Indication: NASOPHARYNGEAL CANCER
     Dosage: 50 MG, UNK
     Route: 042
     Dates: start: 20081222, end: 20090204
  4. RADIOTHERAPY [Concomitant]
     Indication: NASOPHARYNGEAL CANCER
     Dosage: UNK
     Dates: end: 20090209
  5. ONDANSETRON [Concomitant]
     Indication: PREMEDICATION
     Dosage: 15 MG, UNK
     Route: 042
     Dates: start: 20081222, end: 20090204
  6. ACETAMINOFEN [Concomitant]
     Indication: PREMEDICATION
     Dosage: 650 MG, UNK
     Route: 048
     Dates: start: 20081222, end: 20090204
  7. DEXAMETHASONE [Concomitant]
     Indication: DRUG USE FOR UNKNOWN INDICATION
     Dosage: 20 MG, UNK
     Route: 042
     Dates: start: 20081222, end: 20090204

REACTIONS (5)
  - CONSTIPATION [None]
  - DEHYDRATION [None]
  - NAUSEA [None]
  - PYREXIA [None]
  - VOMITING [None]
